FAERS Safety Report 24241007 (Version 1)
Quarter: 2024Q3

REPORT INFORMATION
  Report Type: Report from Study
  Country: MX (occurrence: MX)
  Receive Date: 20240823
  Receipt Date: 20240823
  Transmission Date: 20241017
  Serious: Yes (Other)
  Sender: Unknown Manufacturer
  Company Number: MX-TOPROL ACQUISITION LLC-2019-TOP-000747

PATIENT

DRUGS (4)
  1. METOPROLOL SUCCINATE [Suspect]
     Active Substance: METOPROLOL SUCCINATE
     Indication: Hypertension
     Dosage: 95 MG, BID
     Route: 048
     Dates: start: 2000
  2. AMLODIPINE [Concomitant]
     Active Substance: AMLODIPINE BESYLATE
     Indication: Hypertension
     Dosage: 5 MG, QD
     Route: 048
     Dates: start: 2000
  3. LOSARTAN [Concomitant]
     Active Substance: LOSARTAN\LOSARTAN POTASSIUM
     Indication: Hypertension
     Dosage: 50 MG, BID
     Route: 048
     Dates: start: 2000
  4. LEVOTHYROXINE [Concomitant]
     Active Substance: LEVOTHYROXINE\LEVOTHYROXINE SODIUM
     Indication: Hypothyroidism
     Dosage: 50 ?G, QD
     Route: 048
     Dates: start: 2001

REACTIONS (6)
  - Complication of pregnancy [Recovered/Resolved]
  - Placental disorder [Recovered/Resolved]
  - Premature baby [Recovered/Resolved]
  - Fallopian tube disorder [Recovered/Resolved]
  - Hypothyroidism [Not Recovered/Not Resolved]
  - Gestational hypertension [Recovered/Resolved]

NARRATIVE: CASE EVENT DATE: 20010101
